FAERS Safety Report 10541813 (Version 1)
Quarter: 2014Q4

REPORT INFORMATION
  Report Type: Spontaneous
  Country: US (occurrence: US)
  Receive Date: 20141024
  Receipt Date: 20141024
  Transmission Date: 20150529
  Serious: No
  Sender: FDA-Public Use
  Company Number: US-GILEAD-2014-0119440

PATIENT
  Age: 65 Year
  Sex: Male

DRUGS (3)
  1. SOVALDI [Suspect]
     Active Substance: SOFOSBUVIR
     Indication: HEPATITIS C
     Dosage: UNK
     Route: 065
     Dates: start: 201410
  2. RIBAVIRIN. [Concomitant]
     Active Substance: RIBAVIRIN
  3. INTERFERON NOS [Concomitant]
     Active Substance: INTERFERON

REACTIONS (3)
  - Nausea [Unknown]
  - Blood bilirubin unconjugated increased [Unknown]
  - Vomiting [Unknown]
